FAERS Safety Report 15504484 (Version 1)
Quarter: 2018Q4

REPORT INFORMATION
  Report Type: Spontaneous
  Country: US (occurrence: US)
  Receive Date: 20181009
  Receipt Date: 20181009
  Transmission Date: 20190205
  Serious: Yes (Disabling)
  Sender: FDA-Public Use
  Company Number: None

PATIENT
  Age: 73 Year
  Sex: Male
  Weight: 94.8 kg

DRUGS (1)
  1. DYAZIDE [Suspect]
     Active Substance: HYDROCHLOROTHIAZIDE\TRIAMTERENE
     Indication: HYPERTENSION
     Dosage: ?          OTHER STRENGTH:37.5MG/25/MG;QUANTITY:1 CAPSULE;?
     Route: 048
     Dates: start: 20180917, end: 20180924

REACTIONS (2)
  - Back pain [None]
  - Product quality issue [None]

NARRATIVE: CASE EVENT DATE: 20180917
